FAERS Safety Report 8020183-4 (Version None)
Quarter: 2012Q1

REPORT INFORMATION
  Report Type: 
  Country: None (occurrence: None)
  Receive Date: 20120103
  Receipt Date: 20111220
  Transmission Date: 20120608
  Serious: Yes (Hospitalization, Other)
  Sender: FDA-Public Use
  Company Number: US-ELI_LILLY_AND_COMPANY-US201109006423

PATIENT
  Sex: Female
  Weight: 93.424 kg

DRUGS (21)
  1. DICLOFENAC [Concomitant]
     Dosage: UNK, BID
     Route: 048
  2. PANTOPRAZOLE [Concomitant]
     Dosage: 20 MG, BID
     Route: 048
  3. METOPROLOL TARTRATE [Concomitant]
     Dosage: 50 MG, BID
     Route: 048
  4. FOSAMAX [Concomitant]
     Dosage: 70 MG, WEEKLY (1/W)
     Route: 048
  5. NASONEX [Concomitant]
     Dosage: UNK, PRN
     Route: 045
  6. LANTUS [Concomitant]
     Dosage: 20 U, EACH EVENING
     Route: 058
  7. MAGNESIUM OXIDE [Concomitant]
     Dosage: 1 DF, QD
     Route: 048
  8. LIPITOR [Concomitant]
     Dosage: 10 MG, QD
     Route: 048
  9. METFORMIN HCL [Concomitant]
     Dosage: 1000 MG, BID
     Route: 048
  10. NOVOLOG [Concomitant]
     Dosage: UNK, TID
  11. NITROGLYCERIN [Concomitant]
     Dosage: 0.4 MG, PRN
     Route: 060
  12. TRAMADOL HCL [Concomitant]
     Dosage: 50 MG, PRN
     Route: 048
  13. SOMA [Concomitant]
     Dosage: 350 MG, EACH EVENING
     Route: 048
  14. NYSTATIN [Concomitant]
     Dosage: UNK, PRN
     Route: 061
  15. SPIRONOLACTONE [Concomitant]
     Dosage: 25 MG, QD
     Route: 048
  16. SINGULAIR [Concomitant]
     Dosage: 10 MG, QD
     Route: 048
  17. BYETTA [Suspect]
     Indication: TYPE 2 DIABETES MELLITUS
     Dosage: 5 UG, BID
     Route: 058
     Dates: start: 20110121, end: 20110223
  18. SPIRIVA [Concomitant]
     Dosage: 1 DF, QD
  19. PLAVIX [Concomitant]
     Dosage: 75 MG, QD
     Route: 048
  20. ZETIA [Concomitant]
     Dosage: 10 MG, QD
     Route: 048
  21. BYETTA [Suspect]
     Dosage: 10 UG, BID
     Route: 058
     Dates: start: 20110223, end: 20110323

REACTIONS (9)
  - PANCREATITIS [None]
  - MOBILITY DECREASED [None]
  - DECREASED APPETITE [None]
  - DIABETIC NEUROPATHY [None]
  - OFF LABEL USE [None]
  - GASTRITIS [None]
  - WEIGHT DECREASED [None]
  - URINARY TRACT INFECTION [None]
  - IMPAIRED GASTRIC EMPTYING [None]
